FAERS Safety Report 5305808-6 (Version None)
Quarter: 2007Q2

REPORT INFORMATION
  Report Type: 
  Country: None (occurrence: None)
  Receive Date: 20070420
  Receipt Date: 20070420
  Transmission Date: 20071010
  Serious: No
  Sender: FDA-Public Use
  Company Number: None

PATIENT

DRUGS (3)
  1. SIMVASTATIN [Suspect]
     Indication: DYSLIPIDAEMIA
     Dosage: 80 MG DAILY 047
     Dates: start: 20040930, end: 20070116
  2. SIMVASTATIN [Suspect]
     Indication: RENAL FAILURE CHRONIC
     Dosage: 80 MG DAILY 047
     Dates: start: 20040930, end: 20070116
  3. GEMFIBROZIL [Suspect]
     Indication: HYPERTRIGLYCERIDAEMIA
     Dosage: 600 MG TWICE DAILY 047
     Dates: start: 20061213, end: 20070112

REACTIONS (3)
  - HAEMODIALYSIS [None]
  - RENAL FAILURE ACUTE [None]
  - RHABDOMYOLYSIS [None]
